FAERS Safety Report 7512006-4 (Version None)
Quarter: 2011Q2

REPORT INFORMATION
  Report Type: 
  Country: None (occurrence: None)
  Receive Date: 20110531
  Receipt Date: 20110520
  Transmission Date: 20111010
  Serious: Yes (Other)
  Sender: FDA-Public Use
  Company Number: US-ELI_LILLY_AND_COMPANY-US201105007374

PATIENT
  Sex: Female

DRUGS (5)
  1. HUMULIN R [Suspect]
     Indication: DIABETES MELLITUS
     Dosage: 40 U, BID
     Dates: start: 19910101
  2. LEVEMIR [Concomitant]
  3. HUMULIN 70/30 [Suspect]
     Indication: DIABETES MELLITUS
     Dosage: 100 U, BID
  4. CARDIAC THERAPY [Concomitant]
     Indication: CARDIAC DISORDER
     Dosage: UNK
  5. HUMULIN N [Suspect]
     Indication: DIABETES MELLITUS
     Dosage: 60 U, BID

REACTIONS (9)
  - MUSCLE STRAIN [None]
  - VISUAL IMPAIRMENT [None]
  - DRUG INEFFECTIVE [None]
  - PROCEDURAL COMPLICATION [None]
  - CARDIAC DISORDER [None]
  - CATARACT [None]
  - BLOOD GLUCOSE INCREASED [None]
  - NAIL AVULSION [None]
  - NAIL GROWTH ABNORMAL [None]
